FAERS Safety Report 8716314 (Version 2)
Quarter: 2012Q4

REPORT INFORMATION
  Report Type: 
  Country: US (occurrence: US)
  Receive Date: 20120810
  Receipt Date: 20120919
  Transmission Date: 20130627
  Serious: No
  Sender: FDA-Public Use
  Company Number: US-009507513-1207USA001532

PATIENT

DRUGS (1)
  1. AZASITE [Suspect]
     Dosage: 1 drop, qd per eye
     Route: 031
     Dates: start: 201206

REACTIONS (3)
  - Accidental overdose [Unknown]
  - No adverse event [Unknown]
  - Product quality issue [Unknown]
